FAERS Safety Report 7329483-4 (Version None)
Quarter: 2011Q1

REPORT INFORMATION
  Report Type: 
  Country: None (occurrence: None)
  Receive Date: 20110303
  Receipt Date: 20110228
  Transmission Date: 20110831
  Serious: Yes (Hospitalization)
  Sender: FDA-Public Use
  Company Number: US-PFIZER INC-2011044107

PATIENT
  Sex: Male

DRUGS (6)
  1. BELATACEPT [Suspect]
     Dosage: 10 MG/KG, UNK
     Dates: start: 20090829, end: 20100212
  2. BELATACEPT [Suspect]
     Indication: RENAL TRANSPLANT
     Dosage: 5 MG/KG, UNK
     Route: 042
     Dates: start: 20100212
  3. LISINOPRIL [Concomitant]
     Dosage: UNK
     Dates: start: 20091217
  4. METOPROLOL [Concomitant]
     Dosage: UNK
     Dates: start: 20090917
  5. RAPAMUNE [Suspect]
     Indication: RENAL TRANSPLANT
     Dosage: 3 MG, 1X/DAY
     Route: 048
     Dates: start: 20100322
  6. PRAVACHOL [Concomitant]
     Dosage: UNK
     Dates: start: 20091222

REACTIONS (4)
  - ESCHERICHIA URINARY TRACT INFECTION [None]
  - ESCHERICHIA BACTERAEMIA [None]
  - INFLUENZA [None]
  - COLITIS ULCERATIVE [None]
